FAERS Safety Report 22979586 (Version 2)
Quarter: 2024Q4

REPORT INFORMATION
  Report Type: Spontaneous
  Country: US (occurrence: US)
  Receive Date: 20230925
  Receipt Date: 20241017
  Transmission Date: 20250115
  Serious: No
  Sender: PFIZER
  Company Number: US-PFIZER INC-PV202300109296

PATIENT
  Age: 40 Year
  Sex: Female

DRUGS (6)
  1. DOCETAXEL [Suspect]
     Active Substance: DOCETAXEL
     Indication: Breast cancer metastatic
     Dosage: 125 MG, SINGLE (EVERY 3 WEEKS FOR TOTAL 4 CYCLES)
     Dates: start: 20170314, end: 20170314
  2. DOCETAXEL [Suspect]
     Active Substance: DOCETAXEL
     Dosage: 125 MG, SINGLE (EVERY 3 WEEKS FOR TOTAL 4 CYCLES)
     Dates: start: 20170404, end: 20170404
  3. DOCETAXEL [Suspect]
     Active Substance: DOCETAXEL
     Dosage: 125 MG, SINGLE (EVERY 3 WEEKS FOR TOTAL 4 CYCLES)
     Dates: start: 20170425, end: 20170425
  4. DOCETAXEL [Suspect]
     Active Substance: DOCETAXEL
     Dosage: 125 MG, SINGLE (EVERY 3 WEEKS FOR TOTAL 4 CYCLES)
     Dates: start: 20170516, end: 20170516
  5. CARBOPLATIN [Concomitant]
     Active Substance: CARBOPLATIN
     Indication: Chemotherapy
     Dosage: UNK
  6. HERCEPTIN [Concomitant]
     Active Substance: TRASTUZUMAB
     Indication: Chemotherapy
     Dosage: UNK

REACTIONS (2)
  - Lacrimation increased [Not Recovered/Not Resolved]
  - Lacrimal structure injury [Not Recovered/Not Resolved]

NARRATIVE: CASE EVENT DATE: 20170101
